FAERS Safety Report 7460387-2 (Version None)
Quarter: 2011Q2

REPORT INFORMATION
  Report Type: 
  Country: None (occurrence: None)
  Receive Date: 20110505
  Receipt Date: 20110502
  Transmission Date: 20111010
  Serious: Yes (Death)
  Sender: FDA-Public Use
  Company Number: A0923871A

PATIENT
  Sex: Female

DRUGS (2)
  1. PROMACTA [Suspect]
     Indication: LYMPHOHISTIOCYTOSIS
     Dosage: 50MG PER DAY
     Dates: start: 20100827, end: 20101216
  2. IMMUNE GLOBULIN INTRAVENOUS (HUMAN) [Concomitant]

REACTIONS (5)
  - LYMPHOHISTIOCYTOSIS [None]
  - MULTI-ORGAN FAILURE [None]
  - CARDIAC VALVE DISEASE [None]
  - ABDOMINAL COMPARTMENT SYNDROME [None]
  - DISEASE PROGRESSION [None]
